FAERS Safety Report 16664596 (Version 1)
Quarter: 2019Q3

REPORT INFORMATION
  Report Type: Spontaneous
  Country: BR (occurrence: BR)
  Receive Date: 20190802
  Receipt Date: 20190802
  Transmission Date: 20191004
  Serious: Yes (Other)
  Sender: FDA-Public Use
  Company Number: BR-ABBVIE-19P-020-2872253-00

PATIENT
  Age: 76 Year
  Sex: Male
  Weight: 94 kg

DRUGS (10)
  1. CITALOR [Concomitant]
     Active Substance: ATORVASTATIN
     Indication: LIPIDS INCREASED
     Dosage: DAILY DOSE 20 MILLIGRAM, AT NIGHT; START DATE: AFTER INFARCTION;
     Route: 048
     Dates: start: 2002
  2. SOMALGIN CARDIO [Concomitant]
     Active Substance: ASPIRIN\DIHYDROXYALUMINUM AMINOACETATE ANHYDROUS\MAGNESIUM CARBONATE
     Indication: ANTICOAGULANT THERAPY
     Route: 048
     Dates: start: 2002
  3. SYNTHROID [Suspect]
     Active Substance: LEVOTHYROXINE SODIUM
     Indication: THYROID MASS
     Dosage: DAILY DOSE 175 MICROGRAM, IN THE MORNING (30 MINUTES BEFORE BREAKFAST)
     Route: 048
     Dates: start: 1999
  4. AMLODIPINE [Concomitant]
     Active Substance: AMLODIPINE BESYLATE
     Indication: HEART RATE IRREGULAR
     Route: 048
     Dates: start: 201901
  5. SYNTHROID [Suspect]
     Active Substance: LEVOTHYROXINE SODIUM
     Indication: THYROID HORMONE REPLACEMENT THERAPY
     Dosage: DAILY DOSE 350 MICROGRAM (6:00 AND 9:00)
     Route: 048
     Dates: start: 1999
  6. BENICAR [Concomitant]
     Active Substance: OLMESARTAN MEDOXOMIL
     Indication: BLOOD PRESSURE MEASUREMENT
     Route: 048
     Dates: start: 2002
  7. GLIFAGE [Concomitant]
     Active Substance: METFORMIN HYDROCHLORIDE
     Indication: TYPE 2 DIABETES MELLITUS
     Dosage: DAILY DOSE 2000 MILLIGRAM, MORNING/NIGHT;
     Route: 048
     Dates: start: 2014
  8. CHOLECALCIFEROL [Concomitant]
     Active Substance: CHOLECALCIFEROL
     Indication: THYROID HORMONE REPLACEMENT THERAPY
     Route: 048
     Dates: start: 2010
  9. CONCOR [Concomitant]
     Active Substance: BISOPROLOL FUMARATE
     Indication: HEART RATE IRREGULAR
     Route: 048
     Dates: start: 201901
  10. CHOLECALCIFEROL [Concomitant]
     Active Substance: CHOLECALCIFEROL
     Indication: MINERAL SUPPLEMENTATION

REACTIONS (10)
  - Stent placement [Unknown]
  - Infarction [Unknown]
  - Catheterisation cardiac [Unknown]
  - Feeling abnormal [Unknown]
  - Extra dose administered [Unknown]
  - Arterial occlusive disease [Unknown]
  - Thyroidectomy [Unknown]
  - Coma [Unknown]
  - Diabetes mellitus [Unknown]
  - Condition aggravated [Unknown]

NARRATIVE: CASE EVENT DATE: 2002
